FAERS Safety Report 24981227 (Version 2)
Quarter: 2025Q1

REPORT INFORMATION
  Report Type: Report from Study
  Country: CA (occurrence: CA)
  Receive Date: 20250218
  Receipt Date: 20250221
  Transmission Date: 20250408
  Serious: Yes (Other)
  Sender: DAIICHI
  Company Number: CA-AstraZeneca-CH-00800010A

PATIENT
  Sex: Female

DRUGS (1)
  1. ENHERTU [Suspect]
     Active Substance: FAM-TRASTUZUMAB DERUXTECAN-NXKI
     Indication: Breast cancer metastatic
     Dosage: 370 MG, ONCE EVERY 3 WK
     Route: 042
     Dates: start: 20220630

REACTIONS (19)
  - Kidney fibrosis [Unknown]
  - Pelvi-ureteric obstruction [Unknown]
  - Radiation fibrosis [Unknown]
  - Incontinence [Unknown]
  - Urinary tract infection [Unknown]
  - Cystitis [Unknown]
  - Constipation [Unknown]
  - White blood cell count decreased [Unknown]
  - Red blood cell count decreased [Unknown]
  - Haemoglobin decreased [Unknown]
  - Haematocrit decreased [Unknown]
  - Red cell distribution width increased [Unknown]
  - Lymphocyte count decreased [Unknown]
  - Blood chloride increased [Unknown]
  - Blood lactate dehydrogenase increased [Unknown]
  - Blood urea decreased [Unknown]
  - Blood calcium decreased [Unknown]
  - Protein total decreased [Unknown]
  - Blood albumin decreased [Unknown]
